FAERS Safety Report 5852480-2 (Version None)
Quarter: 2008Q3

REPORT INFORMATION
  Report Type: 
  Country: None (occurrence: None)
  Receive Date: 20080820
  Receipt Date: 20080820
  Transmission Date: 20090109
  Serious: Yes (Disabling)
  Sender: FDA-Public Use
  Company Number: None

PATIENT
  Age: 10 Year
  Sex: Female
  Weight: 31.2982 kg

DRUGS (1)
  1. JR. TYLENOL MELTAWAYS 160MG [Suspect]
     Indication: HEADACHE
     Dosage: 2-1/2 TABLETS 1X EVERY 2 WKS PO, ABOUT 5 YEARS
     Route: 048

REACTIONS (2)
  - INCORRECT DOSE ADMINISTERED [None]
  - MEDICATION ERROR [None]
